FAERS Safety Report 23893656 (Version 1)
Quarter: 2024Q2

REPORT INFORMATION
  Report Type: Spontaneous
  Country: US (occurrence: US)
  Receive Date: 20240524
  Receipt Date: 20240524
  Transmission Date: 20240715
  Serious: No
  Sender: FDA-Public Use
  Company Number: US-COHERUS BIOSCIENCES, Inc.-2024-COH-US000280

PATIENT

DRUGS (1)
  1. UDENYCA [Suspect]
     Active Substance: PEGFILGRASTIM-CBQV
     Indication: Prophylaxis
     Dosage: 6 MG, Q3WEEKS
     Route: 058
     Dates: start: 20240411

REACTIONS (3)
  - Device malfunction [Recovered/Resolved]
  - Device leakage [Recovered/Resolved]
  - Accidental exposure to product [Recovered/Resolved]

NARRATIVE: CASE EVENT DATE: 20240411
